FAERS Safety Report 8122043-7 (Version None)
Quarter: 2012Q1

REPORT INFORMATION
  Report Type: 
  Country: None (occurrence: None)
  Receive Date: 20120208
  Receipt Date: 20120130
  Transmission Date: 20120608
  Serious: Yes (Hospitalization)
  Sender: FDA-Public Use
  Company Number: US-BAYER-2011-042271

PATIENT
  Age: 22 Year
  Sex: Female
  Weight: 77.098 kg

DRUGS (10)
  1. CEFUROXIME [Concomitant]
     Dosage: UNK
     Route: 048
     Dates: start: 20030911
  2. ALLEGRA [Concomitant]
     Dosage: UNK
     Route: 048
     Dates: start: 20030101, end: 20090101
  3. ZOMIG [Concomitant]
     Dosage: UNK
     Dates: start: 19970101, end: 20070101
  4. TERAZOL 1 [Concomitant]
     Dosage: UNK
     Route: 048
     Dates: start: 20030911
  5. YASMIN [Suspect]
     Indication: CONTRACEPTION
     Dosage: UNK
     Dates: start: 20021102, end: 20030922
  6. AMBIEN [Concomitant]
     Dosage: UNK
     Route: 048
     Dates: start: 20020101, end: 20110301
  7. ACCUTANE [Concomitant]
     Indication: ACNE
     Dosage: UNK
     Route: 048
     Dates: start: 20020101, end: 20070101
  8. ADVAIR DISKUS 100/50 [Concomitant]
     Dosage: UNK
     Route: 048
     Dates: start: 20030101, end: 20080101
  9. YASMIN [Suspect]
     Indication: ACNE
  10. ERY-TAB [Concomitant]
     Dosage: UNK
     Route: 048
     Dates: start: 20030912

REACTIONS (8)
  - CHEST PAIN [None]
  - INJURY [None]
  - DYSPNOEA [None]
  - PAIN [None]
  - HEART RATE INCREASED [None]
  - EMOTIONAL DISTRESS [None]
  - ANXIETY [None]
  - PULMONARY EMBOLISM [None]
